FAERS Safety Report 7748666-2 (Version None)
Quarter: 2011Q3

REPORT INFORMATION
  Report Type: 
  Country: None (occurrence: None)
  Receive Date: 20110914
  Receipt Date: 20110907
  Transmission Date: 20111222
  Serious: No
  Sender: FDA-Public Use
  Company Number: US-BIOGENIDEC-2011BI034690

PATIENT
  Sex: Female

DRUGS (3)
  1. TYSABRI [Suspect]
     Indication: MULTIPLE SCLEROSIS
     Route: 042
     Dates: start: 20100511
  2. TYSABRI [Suspect]
     Route: 042
     Dates: start: 20090622, end: 20091020
  3. AVONEX [Concomitant]
     Indication: MULTIPLE SCLEROSIS
     Route: 030

REACTIONS (4)
  - SURGERY [None]
  - PALLOR [None]
  - GENERALISED OEDEMA [None]
  - ASTHENIA [None]
